FAERS Safety Report 5623815-0 (Version None)
Quarter: 2008Q1

REPORT INFORMATION
  Report Type: 
  Country: None (occurrence: None)
  Receive Date: 20080207
  Receipt Date: 20080128
  Transmission Date: 20080703
  Serious: Yes (Other)
  Sender: FDA-Public Use
  Company Number: 2008AP000308

PATIENT
  Age: 44 Year
  Sex: Female

DRUGS (6)
  1. PAROXETINE HCL [Suspect]
     Indication: DEPRESSION
     Dosage: 20 MG; PO; QD; 30 MG; PO; QD
     Route: 048
     Dates: start: 20020325
  2. PAROXETINE HCL [Suspect]
     Indication: DEPRESSION
     Dosage: 20 MG; PO; QD; 30 MG; PO; QD
     Route: 048
     Dates: start: 20020901
  3. AMITRIPTYLINE HCL [Concomitant]
  4. CITALOPRAM HYDROBROMIDE [Concomitant]
  5. RISPERIDONE [Concomitant]
  6. ZOPICLONE (ZOPICLONE) [Concomitant]

REACTIONS (16)
  - AGITATION [None]
  - CONFUSIONAL STATE [None]
  - DEPRESSION [None]
  - DISTURBANCE IN ATTENTION [None]
  - DIZZINESS [None]
  - DRUG WITHDRAWAL SYNDROME [None]
  - HYPOAESTHESIA [None]
  - LETHARGY [None]
  - MEMORY IMPAIRMENT [None]
  - MICTURITION DISORDER [None]
  - PARAESTHESIA [None]
  - SENSORY DISTURBANCE [None]
  - SLEEP DISORDER [None]
  - SUICIDAL IDEATION [None]
  - TREMOR [None]
  - VERTIGO [None]
